FAERS Safety Report 9373902 (Version 1)
Quarter: 2013Q2

REPORT INFORMATION
  Report Type: Spontaneous
  Country: PH (occurrence: PH)
  Receive Date: 20130628
  Receipt Date: 20130628
  Transmission Date: 20140414
  Serious: Yes (Death, Other)
  Sender: FDA-Public Use
  Company Number: PH-009507513-1306PHL011786

PATIENT
  Age: 42 Year
  Sex: Male

DRUGS (1)
  1. JANUVIA [Suspect]
     Dosage: ONE TABLET
     Route: 048

REACTIONS (1)
  - Myocardial infarction [Fatal]
